FAERS Safety Report 11658721 (Version 3)
Quarter: 2015Q4

REPORT INFORMATION
  Report Type: Spontaneous
  Country: US (occurrence: US)
  Receive Date: 20151026
  Receipt Date: 20151028
  Transmission Date: 20160304
  Serious: No
  Sender: FDA-Public Use
  Company Number: PHEH2015US020950

PATIENT
  Sex: Male

DRUGS (1)
  1. OCTREOTIDE. [Suspect]
     Active Substance: OCTREOTIDE
     Indication: PANCREATIC NEUROENDOCRINE TUMOUR
     Route: 065

REACTIONS (4)
  - Hyperhidrosis [Unknown]
  - Urticaria [Unknown]
  - Nausea [Unknown]
  - Chills [Unknown]
